FAERS Safety Report 17544518 (Version 1)
Quarter: 2020Q1

REPORT INFORMATION
  Report Type: Spontaneous
  Country: DE (occurrence: DE)
  Receive Date: 20200316
  Receipt Date: 20200316
  Transmission Date: 20200409
  Serious: Yes (Other)
  Sender: FDA-Public Use
  Company Number: DE-PFIZER INC-2020107999

PATIENT
  Age: 29 Year
  Sex: Female
  Weight: 78 kg

DRUGS (1)
  1. CYTOTEC [Suspect]
     Active Substance: MISOPROSTOL
     Indication: LABOUR INDUCTION
     Dosage: UNK (PROBABLY FIRST DOSE 25MG, SECOND DOSE 50MG)
     Route: 048
     Dates: start: 20050105

REACTIONS (8)
  - Birth trauma [Recovered/Resolved]
  - Uterine tachysystole [Recovered/Resolved]
  - Off label use [Unknown]
  - Maternal exposure during pregnancy [Unknown]
  - Perineal injury [Unknown]
  - Product use in unapproved indication [Unknown]
  - Flashback [Unknown]
  - Mental disorder [Unknown]
